FAERS Safety Report 19040968 (Version 1)
Quarter: 2021Q1

REPORT INFORMATION
  Report Type: Spontaneous
  Country: NL (occurrence: NL)
  Receive Date: 20210322
  Receipt Date: 20210322
  Transmission Date: 20210420
  Serious: Yes (Other)
  Sender: FDA-Public Use
  Company Number: NL-TEVA-2021-NL-1892288

PATIENT
  Sex: Male
  Weight: 78 kg

DRUGS (3)
  1. MONTELUKAST TABLET OMHULD 10MG / BRAND NAME NOT SPECIFIED [Suspect]
     Active Substance: MONTELUKAST SODIUM
     Indication: ASTHMA
     Dosage: 10 MILLIGRAM DAILY;
     Dates: start: 202101, end: 20210226
  2. AZELASTINE/FLUTICASON NEUSSPRAY 137/50UG/DO / DYMISTA NEUSSPRAY 137/50 [Concomitant]
     Dosage: UNIT DOSE :1 DOSAGE FORMS ,137/50 UG / DOSE (MICROGRAMS PER DOSE),THERAPY START DATE:ASKU,THERAPY EN
  3. SALBUTAMOL AEROSOL 100UG/DO / SALBUTAMOL 100 REDIHALER 100MCG/DO SPB 2 [Concomitant]
     Dosage: UNIT DOSE 1 DOSAGE FORMS ,AEROSOL, 100 UG / DOSE (MICROGRAMS PER DOSE),THERAPY START DATE:ASKU, THER

REACTIONS (2)
  - Emotional poverty [Not Recovered/Not Resolved]
  - Erectile dysfunction [Not Recovered/Not Resolved]
